FAERS Safety Report 11483543 (Version 1)
Quarter: 2015Q3

REPORT INFORMATION
  Report Type: Spontaneous
  Country: None (occurrence: None)
  Receive Date: 20150909
  Receipt Date: 20150909
  Transmission Date: 20151125
  Serious: Yes (Hospitalization)
  Sender: FDA-Public Use
  Company Number: None

PATIENT
  Age: 79 Year
  Sex: Female

DRUGS (1)
  1. BUPROPION SR 150 MG ACTAVIS [Suspect]
     Active Substance: BUPROPION
     Dosage: 3
     Route: 048

REACTIONS (1)
  - Seizure [None]
